FAERS Safety Report 9474217 (Version 1)
Quarter: 2013Q3

REPORT INFORMATION
  Report Type: Spontaneous
  Country: ZA (occurrence: None)
  Receive Date: 20130820
  Receipt Date: 20130820
  Transmission Date: 20140515
  Serious: Yes (Death, Disabling)
  Sender: FDA-Public Use
  Company Number: 1646971

PATIENT
  Age: 12 Month
  Sex: Female

DRUGS (1)
  1. NORADRENALINE TARTRATE [Suspect]
     Indication: SEPTIC SHOCK
     Dates: start: 20110420, end: 20110420

REACTIONS (1)
  - Hypoxic-ischaemic encephalopathy [None]
